FAERS Safety Report 12856130 (Version 1)
Quarter: 2016Q4

REPORT INFORMATION
  Report Type: Spontaneous
  Country: US (occurrence: US)
  Receive Date: 20161017
  Receipt Date: 20161017
  Transmission Date: 20170207
  Serious: Yes (Disabling)
  Sender: FDA-Public Use
  Company Number: None

PATIENT
  Age: 29 Year
  Sex: Male
  Weight: 74.25 kg

DRUGS (1)
  1. CITALOPRAM [Suspect]
     Active Substance: CITALOPRAM HYDROBROMIDE
     Indication: ANXIETY
     Dates: start: 20150302, end: 20160101

REACTIONS (7)
  - Hypoaesthesia [None]
  - Sexual dysfunction [None]
  - Disturbance in attention [None]
  - Headache [None]
  - Erectile dysfunction [None]
  - Amnesia [None]
  - Fatigue [None]

NARRATIVE: CASE EVENT DATE: 20160201
